FAERS Safety Report 7064143-9 (Version None)
Quarter: 2010Q4

REPORT INFORMATION
  Report Type: 
  Country: None (occurrence: None)
  Receive Date: 20101027
  Receipt Date: 20101018
  Transmission Date: 20110411
  Serious: Yes (Other)
  Sender: FDA-Public Use
  Company Number: AU-BAYER-201041078GPV

PATIENT
  Age: 63 Year
  Sex: Female

DRUGS (2)
  1. BETAFERON [Suspect]
     Indication: MULTIPLE SCLEROSIS
     Route: 058
     Dates: start: 20070301, end: 20090712
  2. BETAFERON [Suspect]
     Route: 058
     Dates: start: 20090726

REACTIONS (5)
  - ADVERSE DRUG REACTION [None]
  - ADVERSE EVENT [None]
  - AUTONOMIC NEUROPATHY [None]
  - CHEST PAIN [None]
  - PALPITATIONS [None]
